FAERS Safety Report 9272434 (Version 5)
Quarter: 2015Q2

REPORT INFORMATION
  Report Type: Spontaneous
  Country: US (occurrence: US)
  Receive Date: 20130506
  Receipt Date: 20150421
  Transmission Date: 20150821
  Serious: No
  Sender: FDA-Public Use
  Company Number: US-009507513-1305USA000893

PATIENT
  Sex: Male
  Weight: 76.19 kg

DRUGS (3)
  1. PROPECIA [Suspect]
     Active Substance: FINASTERIDE
     Indication: ALOPECIA
     Dosage: 1 MG, QD
     Route: 048
     Dates: start: 20060518, end: 20070709
  2. FINASTERIDE. [Suspect]
     Active Substance: FINASTERIDE
     Indication: ALOPECIA
     Dosage: 1/4 TABLET, QD
     Route: 048
     Dates: start: 20070727, end: 2012
  3. CYMBALTA [Concomitant]
     Active Substance: DULOXETINE HYDROCHLORIDE
     Indication: ANXIETY
     Dosage: 90 MG, QD
     Dates: start: 200512

REACTIONS (25)
  - Iron binding capacity total decreased [Unknown]
  - Insomnia [Unknown]
  - Breast mass [Unknown]
  - Erectile dysfunction [Not Recovered/Not Resolved]
  - Varicocele [Unknown]
  - Gynaecomastia [Unknown]
  - Ejaculation disorder [Not Recovered/Not Resolved]
  - Depression [Unknown]
  - Muscle rupture [Unknown]
  - White blood cell count increased [Unknown]
  - Eczema [Unknown]
  - Libido decreased [Not Recovered/Not Resolved]
  - Blood luteinising hormone decreased [Unknown]
  - Androgen deficiency [Unknown]
  - Body tinea [Unknown]
  - Fatigue [Not Recovered/Not Resolved]
  - Vitamin D decreased [Unknown]
  - Breast pain [Unknown]
  - Hypercholesterolaemia [Not Recovered/Not Resolved]
  - Exercise tolerance decreased [Unknown]
  - Testicular mass [Unknown]
  - Arthralgia [Unknown]
  - Adverse event [Unknown]
  - Arrhythmia [Not Recovered/Not Resolved]
  - Sexual dysfunction [Not Recovered/Not Resolved]

NARRATIVE: CASE EVENT DATE: 2008
